FAERS Safety Report 9510535 (Version 1)
Quarter: 2013Q3

REPORT INFORMATION
  Report Type: Report from Study
  Country: MX (occurrence: MX)
  Receive Date: 20130909
  Receipt Date: 20130909
  Transmission Date: 20140515
  Serious: Yes (Other)
  Sender: FDA-Public Use
  Company Number: PHHY2013MX098558

PATIENT
  Age: 66 Year
  Sex: Female

DRUGS (7)
  1. ACLASTA [Suspect]
     Indication: OSTEOPOROSIS
     Dosage: 5 MG/ 100ML/ ANNUAL
     Route: 042
     Dates: start: 201204
  2. AKINETON [Concomitant]
     Dosage: UNK
  3. ALTRULINE [Concomitant]
     Dosage: UNK
  4. FIBROL [Concomitant]
     Dosage: UNK
  5. GLUCOSAMINE + CHONDROITIN          /01430901/ [Concomitant]
     Dosage: UNK
  6. OSCAL [Concomitant]
     Dosage: UNK
  7. MOBICOX [Concomitant]
     Dosage: UNK

REACTIONS (4)
  - Hip fracture [Not Recovered/Not Resolved]
  - Fall [Recovered/Resolved]
  - Gait disturbance [Not Recovered/Not Resolved]
  - Head injury [Not Recovered/Not Resolved]
